FAERS Safety Report 8401632-6 (Version None)
Quarter: 2012Q2

REPORT INFORMATION
  Report Type: 
  Country: None (occurrence: None)
  Receive Date: 20120601
  Receipt Date: 20120524
  Transmission Date: 20120825
  Serious: Yes (Hospitalization)
  Sender: FDA-Public Use
  Company Number: PHHY2012CA031561

PATIENT
  Sex: Male

DRUGS (3)
  1. DESFERAL [Suspect]
     Dosage: UNK UKN, UNK
     Route: 048
     Dates: start: 20100101
  2. EXJADE [Suspect]
     Indication: MYELODYSPLASTIC SYNDROME
     Dosage: UNK UKN, UNK
     Route: 048
  3. DESFERAL [Suspect]
     Indication: MYELODYSPLASTIC SYNDROME
     Dosage: UNK UKN, UNK
     Dates: start: 20060101

REACTIONS (8)
  - HEPATIC FAILURE [None]
  - ENCEPHALOPATHY [None]
  - SEPSIS [None]
  - OEDEMA PERIPHERAL [None]
  - CARDIAC FAILURE [None]
  - DRUG INTOLERANCE [None]
  - NAUSEA [None]
  - INJECTION SITE PAIN [None]
